FAERS Safety Report 17499851 (Version 7)
Quarter: 2021Q1

REPORT INFORMATION
  Report Type: Report from Study
  Country: FR (occurrence: FR)
  Receive Date: 20200304
  Receipt Date: 20210324
  Transmission Date: 20210419
  Serious: Yes (Hospitalization, Other)
  Sender: FDA-Public Use
  Company Number: FR-BRISTOL-MYERS SQUIBB COMPANY-BMS-2020-015292

PATIENT
  Age: 79 Year
  Sex: Male
  Weight: 76 kg

DRUGS (4)
  1. PANTOPRAZOLE [Concomitant]
     Active Substance: PANTOPRAZOLE
     Indication: GASTROOESOPHAGEAL REFLUX DISEASE
     Dosage: 20 MILLIGRAM, DAILY
     Route: 048
     Dates: start: 20191112
  2. APIXABAN [Suspect]
     Active Substance: APIXABAN
     Dosage: 2.5MG OR 5MG TWICE DAILY ACCORDING TO THE RANDAMIZATION GROUP
     Dates: start: 20200309
  3. APIXABAN [Suspect]
     Active Substance: APIXABAN
     Indication: EMBOLISM VENOUS
     Dosage: 2.5MG OR 5MG TWICE DAILY ACCORDING TO THE RANDAMIZATION GROUP
     Route: 048
     Dates: start: 20200106, end: 20200224
  4. PREGABALIN. [Concomitant]
     Active Substance: PREGABALIN
     Indication: PAIN
     Dosage: 50 MILLIGRAM, DAILY
     Route: 048
     Dates: start: 20191112, end: 20200224

REACTIONS (2)
  - Staphylococcal infection [Recovered/Resolved]
  - Malignant neoplasm progression [Not Recovered/Not Resolved]

NARRATIVE: CASE EVENT DATE: 20200210
